FAERS Safety Report 20436516 (Version 1)
Quarter: 2022Q1

REPORT INFORMATION
  Report Type: Spontaneous
  Country: US (occurrence: US)
  Receive Date: 20220207
  Receipt Date: 20220207
  Transmission Date: 20220423
  Serious: No
  Sender: FDA-Public Use
  Company Number: US-HETERO-HET2022US00283

PATIENT

DRUGS (1)
  1. RITONAVIR [Suspect]
     Active Substance: RITONAVIR
     Indication: COVID-19
     Dosage: 6 DF 2X/DAY (3 PILLS IN THE MORNING AND 3 PILLS AT THE NIGHT, 6 PILLS A DAY FOR 5 DAYS)
     Route: 065
     Dates: start: 202201

REACTIONS (5)
  - Malaise [Unknown]
  - Diarrhoea [Unknown]
  - Nausea [Unknown]
  - Dysgeusia [Unknown]
  - Illness [Unknown]

NARRATIVE: CASE EVENT DATE: 20220101
